FAERS Safety Report 23722768 (Version 2)
Quarter: 2024Q4

REPORT INFORMATION
  Report Type: Spontaneous
  Country: US (occurrence: US)
  Receive Date: 20240409
  Receipt Date: 20241227
  Transmission Date: 20250114
  Serious: Yes (Hospitalization, Other)
  Sender: PFIZER
  Company Number: US-PFIZER INC-PV202400044515

PATIENT
  Age: 57 Year
  Sex: Male
  Weight: 123.38 kg

DRUGS (37)
  1. MEDROL [Suspect]
     Active Substance: METHYLPREDNISOLONE
     Dosage: UNK
  2. TACROLIMUS [Suspect]
     Active Substance: TACROLIMUS
     Dosage: 0.5 MG
     Dates: end: 202405
  3. TACROLIMUS [Suspect]
     Active Substance: TACROLIMUS
     Dosage: UNK
     Dates: end: 202406
  4. JAKAFI [Suspect]
     Active Substance: RUXOLITINIB
     Indication: Non-Hodgkin^s lymphoma
     Dosage: 5 MG, 2X/DAY
     Route: 048
     Dates: start: 20180101
  5. JAKAFI [Suspect]
     Active Substance: RUXOLITINIB
     Dosage: 5 MG, 2X/DAY
     Route: 048
     Dates: start: 20210623
  6. JAKAFI [Suspect]
     Active Substance: RUXOLITINIB
     Dosage: 5 MG, 2X/DAY
     Route: 048
  7. JAKAFI [Suspect]
     Active Substance: RUXOLITINIB
     Dosage: 5 MG, 2X/DAY
     Route: 048
  8. JAKAFI [Suspect]
     Active Substance: RUXOLITINIB
     Dosage: 5 MG, 2X/DAY
     Route: 048
  9. JAKAFI [Suspect]
     Active Substance: RUXOLITINIB
     Dosage: 5 MG, 2X/DAY
     Route: 048
  10. JAKAFI [Suspect]
     Active Substance: RUXOLITINIB
     Dosage: 5 MG, 2X/DAY
     Route: 048
  11. JAKAFI [Suspect]
     Active Substance: RUXOLITINIB
     Dosage: 5 MG, 2X/DAY
     Route: 048
  12. JAKAFI [Suspect]
     Active Substance: RUXOLITINIB
     Dosage: 5 MG, 2X/DAY
     Route: 048
  13. CALQUENCE [Suspect]
     Active Substance: ACALABRUTINIB
     Dosage: 100 MG
     Dates: end: 202406
  14. PREDNISONE [Suspect]
     Active Substance: PREDNISONE
     Dosage: UNK
     Dates: end: 202406
  15. POSACONAZOLE [Suspect]
     Active Substance: POSACONAZOLE
     Dosage: 100 MG
     Dates: end: 202406
  16. ACETAMINOPHEN [Concomitant]
     Active Substance: ACETAMINOPHEN
     Dosage: 500 MG
  17. ENULOSE [Concomitant]
     Active Substance: LACTULOSE
     Dosage: UNK (10GM/15ML)
  18. ADDERALL [Concomitant]
     Active Substance: AMPHETAMINE ASPARTATE\AMPHETAMINE SULFATE\DEXTROAMPHETAMINE SACCHARATE\DEXTROAMPHETAMINE SULFATE
     Dosage: 15 MG
  19. ADDERALL [Concomitant]
     Active Substance: AMPHETAMINE ASPARTATE\AMPHETAMINE SULFATE\DEXTROAMPHETAMINE SACCHARATE\DEXTROAMPHETAMINE SULFATE
     Dosage: 10 MG
  20. MAGNESIUM [Concomitant]
     Active Substance: MAGNESIUM
     Dosage: 500 MG
  21. DOCUSATE SOD [Concomitant]
     Dosage: 250 MG
  22. VITAMIN D NOS [Concomitant]
     Active Substance: CHOLECALCIFEROL\ERGOCALCIFEROL
     Dosage: 25 UG
  23. TUMS [Concomitant]
     Active Substance: CALCIUM CARBONATE
     Dosage: 500 MG
  24. DEXTROAMPHETAMINE [Concomitant]
     Active Substance: DEXTROAMPHETAMINE
     Dosage: UNK
  25. HYDROCODONE [Concomitant]
     Active Substance: HYDROCODONE
     Dosage: UNK (7.5-325 M)
  26. MONTELUKAST [Concomitant]
     Active Substance: MONTELUKAST SODIUM
     Dosage: 10 MG
  27. NOVOLIN N [Concomitant]
     Active Substance: INSULIN HUMAN
     Dosage: 100 IU/ML
  28. OZEMPIC [Concomitant]
     Active Substance: SEMAGLUTIDE
     Dosage: UNK
  29. PANTOPRAZOLE [Concomitant]
     Active Substance: PANTOPRAZOLE
     Dosage: 40 MG
  30. ROSUVASTATIN [Concomitant]
     Active Substance: ROSUVASTATIN
     Dosage: 5 MG
  31. HYDROCHLOROTHIAZIDE [Concomitant]
     Active Substance: HYDROCHLOROTHIAZIDE
     Dosage: 25 MG
  32. VITAMIN B6 [Concomitant]
     Active Substance: PYRIDOXINE HYDROCHLORIDE
     Dosage: UNK
  33. INSULIN NOS [Concomitant]
     Active Substance: INSULIN NOS
     Dosage: 250 MG
  34. GUAR GUM [Concomitant]
     Active Substance: GUAR GUM
     Dosage: UNK
  35. ISOPHANE INSULIN [Concomitant]
     Active Substance: INSULIN NOS
     Dosage: 100 IU/ML
  36. SEMAGLUTIDE [Concomitant]
     Active Substance: SEMAGLUTIDE
     Dosage: UNK, 0.2 SOP 2 MG/1.5 M
  37. PYRIDOXINE HYDROCHLORIDE [Concomitant]
     Active Substance: PYRIDOXINE HYDROCHLORIDE
     Dosage: 15 MG

REACTIONS (90)
  - COVID-19 [Unknown]
  - Nephrolithiasis [Recovering/Resolving]
  - Disease recurrence [Recovering/Resolving]
  - Prostatomegaly [Unknown]
  - Bone marrow transplant [Unknown]
  - Volvulus [Unknown]
  - Narcolepsy [Unknown]
  - Weight fluctuation [Unknown]
  - Neoplasm [Unknown]
  - Fall [Unknown]
  - Rib fracture [Unknown]
  - Blood glucose increased [Unknown]
  - Blood testosterone decreased [Unknown]
  - Blood immunoglobulin A decreased [Unknown]
  - Blood immunoglobulin G decreased [Unknown]
  - Blood immunoglobulin M decreased [Unknown]
  - Neuropathy peripheral [Unknown]
  - Ill-defined disorder [Unknown]
  - Ureteric rupture [Unknown]
  - Blood pressure fluctuation [Unknown]
  - Arthropathy [Unknown]
  - Gingival pain [Unknown]
  - Gingival bleeding [Unknown]
  - Memory impairment [Unknown]
  - Fatigue [Unknown]
  - Constipation [Recovered/Resolved]
  - Dizziness [Unknown]
  - Coccydynia [Unknown]
  - Musculoskeletal pain [Unknown]
  - Pruritus [Unknown]
  - Amnesia [Unknown]
  - Abdominal distension [Unknown]
  - Hypersensitivity [Unknown]
  - Brain fog [Unknown]
  - Blood creatinine increased [Unknown]
  - Glomerular filtration rate decreased [Unknown]
  - Faeces soft [Unknown]
  - Blood creatinine abnormal [Unknown]
  - Dyspnoea [Unknown]
  - Bradyphrenia [Unknown]
  - Asthenia [Unknown]
  - Somnolence [Unknown]
  - Malaise [Unknown]
  - Nasal crusting [Unknown]
  - Sinus disorder [Unknown]
  - Tongue disorder [Unknown]
  - Ageusia [Unknown]
  - Early satiety [Unknown]
  - Balance disorder [Unknown]
  - Pain [Not Recovered/Not Resolved]
  - Discouragement [Unknown]
  - Impaired quality of life [Unknown]
  - Time perception altered [Unknown]
  - Attention deficit hyperactivity disorder [Unknown]
  - Diarrhoea [Unknown]
  - Vertigo positional [Unknown]
  - Respiratory syncytial virus infection [Unknown]
  - Vision blurred [Unknown]
  - Gastrooesophageal reflux disease [Unknown]
  - Disturbance in attention [Unknown]
  - Blood uric acid increased [Unknown]
  - Red blood cell count decreased [Unknown]
  - Haematocrit decreased [Unknown]
  - Platelet count decreased [Unknown]
  - Mean platelet volume increased [Unknown]
  - Joint injury [Unknown]
  - Arthrodesis [Unknown]
  - Joint stiffness [Unknown]
  - Nephropathy [Unknown]
  - Procedural pain [Unknown]
  - Muscle spasms [Unknown]
  - Myalgia [Unknown]
  - Back pain [Unknown]
  - Abnormal faeces [Unknown]
  - Plantar fasciitis [Unknown]
  - Arthralgia [Unknown]
  - Faeces hard [Unknown]
  - Infrequent bowel movements [Unknown]
  - Limb injury [Unknown]
  - Blister [Unknown]
  - Vomiting [Unknown]
  - Dermatitis [Unknown]
  - Haemoglobin decreased [Unknown]
  - Stress [Unknown]
  - Pain in extremity [Unknown]
  - Blood calcium abnormal [Unknown]
  - Confusional state [Unknown]
  - Apathy [Unknown]
  - Product dose omission in error [Unknown]
  - Product dose omission issue [Unknown]

NARRATIVE: CASE EVENT DATE: 20210623
